FAERS Safety Report 9133222 (Version 1)
Quarter: 2013Q1

REPORT INFORMATION
  Report Type: Spontaneous
  Country: US (occurrence: US)
  Receive Date: 20130301
  Receipt Date: 20130301
  Transmission Date: 20140127
  Serious: No
  Sender: FDA-Public Use
  Company Number: US-009507513-1302USA010611

PATIENT
  Age: 26 Year
  Sex: Female
  Weight: 58.96 kg

DRUGS (3)
  1. NUVARING [Suspect]
     Indication: CONTRACEPTION
     Dosage: 1 DF, 1 RING FOR 3 WEEKS FOLLOWED BY A WEEK FREE BREAK
     Route: 067
     Dates: start: 201002
  2. AZITHROMYCIN [Concomitant]
  3. HYDROCODONE [Concomitant]
     Indication: BRONCHITIS

REACTIONS (3)
  - Vaginal haemorrhage [Unknown]
  - Unintended pregnancy [Unknown]
  - Medication error [Unknown]
